FAERS Safety Report 8525377-7 (Version None)
Quarter: 2012Q3

REPORT INFORMATION
  Report Type: 
  Country: None (occurrence: None)
  Receive Date: 20120720
  Receipt Date: 20120710
  Transmission Date: 20120928
  Serious: Yes (Other)
  Sender: FDA-Public Use
  Company Number: DE-TEVA-349088GER

PATIENT
  Age: 57 Year
  Sex: Male

DRUGS (1)
  1. COPAXONE [Suspect]
     Indication: MULTIPLE SCLEROSIS
     Dosage: 20 MILLIGRAM;
     Route: 058
     Dates: start: 20081203

REACTIONS (4)
  - PARESIS [None]
  - IMPAIRED REASONING [None]
  - SECONDARY PROGRESSIVE MULTIPLE SCLEROSIS [None]
  - OFF LABEL USE [None]
